FAERS Safety Report 19872475 (Version 1)
Quarter: 2021Q3

REPORT INFORMATION
  Report Type: Spontaneous
  Country: US (occurrence: US)
  Receive Date: 20210923
  Receipt Date: 20210923
  Transmission Date: 20211014
  Serious: No
  Sender: FDA-Public Use
  Company Number: None

PATIENT
  Age: 69 Year
  Sex: Female

DRUGS (9)
  1. AUSTEDO [Suspect]
     Active Substance: DEUTETRABENAZINE
     Indication: BIPOLAR II DISORDER
     Dates: start: 20210624
  2. PRESERVISION [Concomitant]
     Active Substance: MINERALS\VITAMINS
  3. VITAMIN C [Concomitant]
     Active Substance: ASCORBIC ACID
  4. INGREZZA [Concomitant]
     Active Substance: VALBENAZINE
  5. TRILEPTAL 150MG [Concomitant]
  6. CYMBALTA [Concomitant]
     Active Substance: DULOXETINE HYDROCHLORIDE
  7. VITAMIN E [Concomitant]
     Active Substance: .ALPHA.-TOCOPHEROL
  8. WELLBUTRIN 75MG [Concomitant]
  9. VITAMIN B [Concomitant]
     Active Substance: VITAMIN B

REACTIONS (2)
  - Visual acuity reduced [None]
  - Hallucination, visual [None]

NARRATIVE: CASE EVENT DATE: 20210901
